FAERS Safety Report 12282306 (Version 1)
Quarter: 2016Q2

REPORT INFORMATION
  Report Type: Spontaneous
  Country: CA (occurrence: CA)
  Receive Date: 20160419
  Receipt Date: 20160419
  Transmission Date: 20160815
  Serious: Yes (Other)
  Sender: FDA-Public Use
  Company Number: CA-CORDEN PHARMA LATINA S.P.A.-CA-2016COR000077

PATIENT
  Age: 17 Month
  Sex: Male

DRUGS (6)
  1. CYCLOPHOSPHAMIDE. [Suspect]
     Active Substance: CYCLOPHOSPHAMIDE
     Indication: RHABDOID TUMOUR
     Dosage: 60 MG/KG/DOSE, OVER 2 DAYS
  2. GRANULOCYTE COLONY STIMULATING FACTOR [Suspect]
     Active Substance: GRANULOCYTE COLONY-STIMULATING FACTOR NOS
     Indication: PROPHYLAXIS
     Dosage: 5 ?G/KG/DOSE, UNK
  3. CISPLATINUM [Suspect]
     Active Substance: CISPLATIN
     Indication: RHABDOID TUMOUR
     Dosage: 3.5 MG/KG/DOSE, UNK
  4. ETOPOSIDE. [Suspect]
     Active Substance: ETOPOSIDE
     Indication: RHABDOID TUMOUR
     Dosage: 2.5 MG/KG/DOSE, OVER 3 DAYS
  5. VINCRISTINE [Suspect]
     Active Substance: VINCRISTINE
     Indication: RHABDOID TUMOUR
     Dosage: 0.05 MG/KG/DOSE, UNK
  6. METHOTREXATE [Suspect]
     Active Substance: METHOTREXATE
     Indication: RHABDOID TUMOUR
     Dosage: 8G/KG/M2/DOSE
     Route: 042

REACTIONS (17)
  - Adenovirus infection [Recovered/Resolved]
  - Clostridium difficile infection [Recovered/Resolved]
  - Hypotension [Recovered/Resolved]
  - Tachycardia [Recovered/Resolved]
  - Neutropenia [Recovered/Resolved]
  - Hepatic candidiasis [Recovered/Resolved]
  - Hepatic necrosis [Recovered/Resolved]
  - Blood alkaline phosphatase increased [Recovered/Resolved]
  - Chills [Recovered/Resolved]
  - Rhinorrhoea [Recovered/Resolved]
  - Hypogammaglobulinaemia [Recovered/Resolved]
  - Alanine aminotransferase increased [Recovered/Resolved]
  - Diarrhoea [Recovered/Resolved]
  - Sepsis [Recovered/Resolved]
  - Pyrexia [Recovered/Resolved]
  - Aspartate aminotransferase increased [Recovered/Resolved]
  - Abdominal discomfort [Recovered/Resolved]
